FAERS Safety Report 9101893 (Version 3)
Quarter: 2013Q2

REPORT INFORMATION
  Report Type: Spontaneous
  Country: DK (occurrence: DK)
  Receive Date: 20130218
  Receipt Date: 20130501
  Transmission Date: 20140414
  Serious: Yes (Hospitalization, Other)
  Sender: FDA-Public Use
  Company Number: DK-ELI_LILLY_AND_COMPANY-DK201302001254

PATIENT
  Age: 69 Year
  Sex: Male
  Weight: 80 kg

DRUGS (3)
  1. ZYPADHERA [Suspect]
     Indication: SCHIZOPHRENIA
     Dosage: 405 MG, 2/M
     Route: 030
     Dates: start: 20110930
  2. CISORDINOL                         /00876704/ [Concomitant]
     Indication: SCHIZOPHRENIA
     Dosage: 200 MG, 2/M
  3. CISORDINOL                         /00876704/ [Concomitant]
     Dosage: 300 MG, 2/M

REACTIONS (9)
  - Sedation [Recovered/Resolved]
  - Confusional state [Recovered/Resolved]
  - Pyrexia [Recovered/Resolved]
  - Blood pressure systolic increased [Recovered/Resolved]
  - Malaise [Recovered/Resolved]
  - Gait disturbance [Recovered/Resolved]
  - Nervous system disorder [Recovered/Resolved]
  - Rales [Recovered/Resolved]
  - Overdose [Recovered/Resolved]
